FAERS Safety Report 4672990-3 (Version None)
Quarter: 2005Q2

REPORT INFORMATION
  Report Type: 
  Country: None (occurrence: None)
  Receive Date: 20050524
  Receipt Date: 20050510
  Transmission Date: 20051028
  Serious: Yes (Death)
  Sender: FDA-Public Use
  Company Number: GXKR2005US01040

PATIENT
  Age: 40 Year
  Sex: Male

DRUGS (4)
  1. AMITRIPTYLINE HCL [Suspect]
     Indication: PAIN IN EXTREMITY
  2. NORTRIPTYLINE HCL [Suspect]
  3. METHADONE HCL [Suspect]
  4. PROPOXYPHENE (DEXTROPROPOXYPHENE) [Suspect]

REACTIONS (5)
  - ALCOHOL USE [None]
  - DRUG ABUSER [None]
  - DRUG INTERACTION [None]
  - DRUG TOXICITY [None]
  - MULTIPLE DRUG OVERDOSE ACCIDENTAL [None]
